FAERS Safety Report 6993351-8 (Version None)
Quarter: 2010Q3

REPORT INFORMATION
  Report Type: 
  Country: None (occurrence: None)
  Receive Date: 20100917
  Receipt Date: 20100208
  Transmission Date: 20110219
  Serious: No
  Sender: FDA-Public Use
  Company Number: US-ASTRAZENECA-2009SE33174

PATIENT
  Age: 514 Month
  Sex: Female
  Weight: 92.5 kg

DRUGS (2)
  1. SEROQUEL [Suspect]
     Indication: DEPRESSION
     Route: 048
     Dates: start: 19930101
  2. SEROQUEL [Suspect]
     Route: 048
     Dates: start: 20020101

REACTIONS (4)
  - BACK INJURY [None]
  - BLOOD TRIGLYCERIDES INCREASED [None]
  - OBESITY [None]
  - TYPE 2 DIABETES MELLITUS [None]
